FAERS Safety Report 6059623-9 (Version None)
Quarter: 2009Q1

REPORT INFORMATION
  Report Type: 
  Country: None (occurrence: None)
  Receive Date: 20090130
  Receipt Date: 20090120
  Transmission Date: 20090719
  Serious: Yes (Life-Threatening, Hospitalization)
  Sender: FDA-Public Use
  Company Number: US-ROCHE-609234

PATIENT
  Sex: Male
  Weight: 102.5 kg

DRUGS (7)
  1. MYCOPHENOLATE MOFETIL [Suspect]
     Indication: DRUG USE FOR UNKNOWN INDICATION
     Route: 048
     Dates: start: 20081110, end: 20090116
  2. MYCOPHENOLATE MOFETIL [Suspect]
     Route: 048
     Dates: start: 20090118
  3. AVONEX [Suspect]
     Indication: DRUG USE FOR UNKNOWN INDICATION
     Route: 030
     Dates: start: 20080527
  4. PROVIGIL [Concomitant]
     Dates: start: 20080411
  5. TEGRETOL [Concomitant]
  6. NAPRELAN [Concomitant]
     Dosage: TAKEN WEEKLY WITH AVENOX
     Dates: start: 20080527
  7. BENADRYL [Concomitant]
     Dates: start: 20080812

REACTIONS (1)
  - MYOCARDIAL INFARCTION [None]
